FAERS Safety Report 18376638 (Version 1)
Quarter: 2020Q4

REPORT INFORMATION
  Report Type: Spontaneous
  Country: US (occurrence: US)
  Receive Date: 20201012
  Receipt Date: 20201012
  Transmission Date: 20210114
  Serious: Yes (Death)
  Sender: FDA-Public Use
  Company Number: None

PATIENT
  Age: 53 Year
  Sex: Male
  Weight: 83.73 kg

DRUGS (13)
  1. ALPRAZOLAM. [Concomitant]
     Active Substance: ALPRAZOLAM
  2. FENTANYL. [Concomitant]
     Active Substance: FENTANYL
  3. CISPLATIN. [Concomitant]
     Active Substance: CISPLATIN
  4. ETOPOSIDE. [Concomitant]
     Active Substance: ETOPOSIDE
  5. LISINOPRIL. [Concomitant]
     Active Substance: LISINOPRIL
  6. FINASTERIDE. [Concomitant]
     Active Substance: FINASTERIDE
  7. OMEPRAZOLE. [Concomitant]
     Active Substance: OMEPRAZOLE
  8. ALLOPURINOL. [Concomitant]
     Active Substance: ALLOPURINOL
  9. OLANZAPINE. [Concomitant]
     Active Substance: OLANZAPINE
  10. IMFINZI [Concomitant]
     Active Substance: DURVALUMAB
  11. CYCLOBENZAPRINE HCL [Concomitant]
     Active Substance: CYCLOBENZAPRINE HYDROCHLORIDE
  12. AKYNZEO [Suspect]
     Active Substance: NETUPITANT\PALONOSETRON HYDROCHLORIDE
     Indication: LUNG NEOPLASM MALIGNANT
     Dosage: ?          OTHER FREQUENCY:EVERY 21 DAYS;?
     Route: 042
     Dates: start: 20200716, end: 20201012
  13. TAMSULOSIN HCL [Concomitant]
     Active Substance: TAMSULOSIN HYDROCHLORIDE

REACTIONS (1)
  - Death [None]

NARRATIVE: CASE EVENT DATE: 20201012
